FAERS Safety Report 18950273 (Version 1)
Quarter: 2021Q1

REPORT INFORMATION
  Report Type: Spontaneous
  Country: US (occurrence: US)
  Receive Date: 20210228
  Receipt Date: 20210228
  Transmission Date: 20210420
  Serious: No
  Sender: FDA-Public Use
  Company Number: US-ROCHE-2709599

PATIENT
  Sex: Female
  Weight: 66.67 kg

DRUGS (4)
  1. XOLAIR [Suspect]
     Active Substance: OMALIZUMAB
  2. XOLAIR [Suspect]
     Active Substance: OMALIZUMAB
  3. XOLAIR [Suspect]
     Active Substance: OMALIZUMAB
     Indication: IDIOPATHIC URTICARIA
     Dosage: 150 MG/ML,
     Route: 058
     Dates: start: 20200817
  4. KETOTIFEN [Concomitant]
     Active Substance: KETOTIFEN
     Route: 048
     Dates: start: 2017

REACTIONS (2)
  - Bone pain [Recovered/Resolved]
  - Arthralgia [Recovered/Resolved]
